FAERS Safety Report 21724534 (Version 10)
Quarter: 2023Q1

REPORT INFORMATION
  Report Type: Spontaneous
  Country: HR (occurrence: HR)
  Receive Date: 20221213
  Receipt Date: 20230228
  Transmission Date: 20230418
  Serious: Yes (Other)
  Sender: FDA-Public Use
  Company Number: HR-BRISTOL-MYERS SQUIBB COMPANY-2022-151110

PATIENT
  Age: 73 Year
  Sex: Male
  Weight: 105 kg

DRUGS (55)
  1. APIXABAN [Suspect]
     Active Substance: APIXABAN
     Indication: Cerebrovascular accident prophylaxis
     Dosage: 0.5
  2. APIXABAN [Suspect]
     Active Substance: APIXABAN
     Route: 048
  3. APIXABAN [Suspect]
     Active Substance: APIXABAN
  4. APIXABAN [Suspect]
     Active Substance: APIXABAN
     Dosage: 2X/DAY
     Route: 048
  5. PANTOPRAZOLE SODIUM [Suspect]
     Active Substance: PANTOPRAZOLE SODIUM
     Indication: Product used for unknown indication
     Dosage: PANTOPRAZOLE SODIUM [PANTOPRAZOLE SODIUM]
  6. AMIODARONE HYDROCHLORIDE [Suspect]
     Active Substance: AMIODARONE HYDROCHLORIDE
     Indication: Product used for unknown indication
  7. AMIODARONE HYDROCHLORIDE [Suspect]
     Active Substance: AMIODARONE HYDROCHLORIDE
  8. AMIODARONE HYDROCHLORIDE [Suspect]
     Active Substance: AMIODARONE HYDROCHLORIDE
  9. AMIODARONE HYDROCHLORIDE [Suspect]
     Active Substance: AMIODARONE HYDROCHLORIDE
  10. AMIODARONE HYDROCHLORIDE [Suspect]
     Active Substance: AMIODARONE HYDROCHLORIDE
  11. RAMIPRIL [Suspect]
     Active Substance: RAMIPRIL
     Indication: Product used for unknown indication
  12. RAMIPRIL [Suspect]
     Active Substance: RAMIPRIL
  13. RAMIPRIL [Suspect]
     Active Substance: RAMIPRIL
  14. RAMIPRIL [Suspect]
     Active Substance: RAMIPRIL
  15. RAMIPRIL [Suspect]
     Active Substance: RAMIPRIL
  16. RAMIPRIL [Suspect]
     Active Substance: RAMIPRIL
  17. METOPROLOL [Suspect]
     Active Substance: METOPROLOL
     Indication: Product used for unknown indication
     Dosage: METOPROLOL SALT NOT SPECIFIED
  18. METOPROLOL [Suspect]
     Active Substance: METOPROLOL
  19. METOPROLOL [Suspect]
     Active Substance: METOPROLOL
  20. METOPROLOL [Suspect]
     Active Substance: METOPROLOL
  21. WARFARIN SODIUM [Suspect]
     Active Substance: WARFARIN SODIUM
     Indication: Product used for unknown indication
  22. WARFARIN SODIUM [Suspect]
     Active Substance: WARFARIN SODIUM
  23. WARFARIN SODIUM [Suspect]
     Active Substance: WARFARIN SODIUM
  24. WARFARIN SODIUM [Suspect]
     Active Substance: WARFARIN SODIUM
  25. ROSUVASTATIN [Suspect]
     Active Substance: ROSUVASTATIN
     Indication: Product used for unknown indication
  26. ROSUVASTATIN [Suspect]
     Active Substance: ROSUVASTATIN
  27. ROSUVASTATIN [Suspect]
     Active Substance: ROSUVASTATIN
  28. ROSUVASTATIN [Suspect]
     Active Substance: ROSUVASTATIN
  29. ROSUVASTATIN [Suspect]
     Active Substance: ROSUVASTATIN
  30. ASPIRIN [Suspect]
     Active Substance: ASPIRIN
     Indication: Product used for unknown indication
     Dates: end: 2016
  31. ASPIRIN [Suspect]
     Active Substance: ASPIRIN
     Dates: end: 2016
  32. ASPIRIN [Suspect]
     Active Substance: ASPIRIN
     Dates: end: 2016
  33. CLOPIDOGREL BISULFATE [Suspect]
     Active Substance: CLOPIDOGREL BISULFATE
     Indication: Product used for unknown indication
     Dates: end: 2016
  34. CLOPIDOGREL BISULFATE [Suspect]
     Active Substance: CLOPIDOGREL BISULFATE
     Dates: start: 2016
  35. CLOPIDOGREL BISULFATE [Suspect]
     Active Substance: CLOPIDOGREL BISULFATE
  36. CLOPIDOGREL BISULFATE [Suspect]
     Active Substance: CLOPIDOGREL BISULFATE
  37. DABIGATRAN [Suspect]
     Active Substance: DABIGATRAN
     Indication: Product used for unknown indication
  38. DABIGATRAN [Suspect]
     Active Substance: DABIGATRAN
     Dosage: 110 MG, QD
  39. DABIGATRAN [Suspect]
     Active Substance: DABIGATRAN
     Dosage: 110 MG, 12HR
  40. DALTEPARIN [Suspect]
     Active Substance: DALTEPARIN
     Indication: Product used for unknown indication
     Dosage: 0.5 - DAILY
  41. DALTEPARIN [Suspect]
     Active Substance: DALTEPARIN
     Dosage: 0.5 - DAILY
  42. DALTEPARIN [Suspect]
     Active Substance: DALTEPARIN
     Dosage: 0.5 - DAILY
  43. DALTEPARIN [Suspect]
     Active Substance: DALTEPARIN
  44. DALTEPARIN [Suspect]
     Active Substance: DALTEPARIN
  45. MESALAMINE [Suspect]
     Active Substance: MESALAMINE
     Indication: Product used for unknown indication
     Dosage: 100 MG
     Dates: end: 2016
  46. MESALAMINE [Suspect]
     Active Substance: MESALAMINE
     Dosage: 100 MG
     Dates: start: 2016
  47. MESALAMINE [Suspect]
     Active Substance: MESALAMINE
     Dosage: 100 MG
     Dates: start: 2016
  48. CLOPIDOGREL [Suspect]
     Active Substance: CLOPIDOGREL BISULFATE
     Indication: Product used for unknown indication
     Dates: end: 2016
  49. CLOPIDOGREL [Suspect]
     Active Substance: CLOPIDOGREL BISULFATE
     Dates: start: 2016
  50. DALTEPARIN SODIUM [Suspect]
     Active Substance: DALTEPARIN SODIUM
     Indication: Product used for unknown indication
     Dosage: 0.5 - DAILY
  51. METOPROLOL TARTRATE [Suspect]
     Active Substance: METOPROLOL TARTRATE
     Indication: Product used for unknown indication
  52. METOPROLOL TARTRATE [Suspect]
     Active Substance: METOPROLOL TARTRATE
  53. PANTOPRAZOLE [Suspect]
     Active Substance: PANTOPRAZOLE
     Indication: Product used for unknown indication
  54. PANTOPRAZOLE [Suspect]
     Active Substance: PANTOPRAZOLE
  55. PANTOPRAZOLE [Suspect]
     Active Substance: PANTOPRAZOLE

REACTIONS (4)
  - Adenocarcinoma of colon [Unknown]
  - Anastomotic infection [Unknown]
  - Atrial fibrillation [Unknown]
  - Increased tendency to bruise [Unknown]

NARRATIVE: CASE EVENT DATE: 20160101
